FAERS Safety Report 10246907 (Version 1)
Quarter: 2014Q2

REPORT INFORMATION
  Report Type: Spontaneous
  Country: RU (occurrence: RU)
  Receive Date: 20140619
  Receipt Date: 20140619
  Transmission Date: 20141212
  Serious: Yes (Other)
  Sender: FDA-Public Use
  Company Number: RU-WATSON-2014-13951

PATIENT
  Age: 40 Year
  Sex: Female

DRUGS (1)
  1. EMLA (WATSON LABORATORIES) [Suspect]
     Indication: THERAPEUTIC PROCEDURE
     Dosage: UNK, UNKNOWN
     Route: 061

REACTIONS (3)
  - Vasospasm [Unknown]
  - Hypersensitivity [Recovered/Resolved]
  - Malaise [Unknown]
